FAERS Safety Report 17123933 (Version 1)
Quarter: 2019Q4

REPORT INFORMATION
  Report Type: Spontaneous
  Country: US (occurrence: US)
  Receive Date: 20191206
  Receipt Date: 20191206
  Transmission Date: 20200122
  Serious: Yes (Hospitalization)
  Sender: FDA-Public Use
  Company Number: US-ROCHE-2372795

PATIENT
  Age: 32 Year
  Sex: Female
  Weight: 34 kg

DRUGS (3)
  1. OCREVUS [Suspect]
     Active Substance: OCRELIZUMAB
     Indication: PRIMARY PROGRESSIVE MULTIPLE SCLEROSIS
     Dosage: LAST DOSE OF OCREVUS WAS IN FEB/2019?8/FEB/2019, SHE AGAIN RECEIVED OCRELIZUMAB TREATMENT
     Route: 042
     Dates: start: 20180112
  2. VIT D [Concomitant]
     Active Substance: VITAMIN D NOS
  3. CYMBALTA [Concomitant]
     Active Substance: DULOXETINE HYDROCHLORIDE

REACTIONS (1)
  - Neutropenia [Recovered/Resolved]

NARRATIVE: CASE EVENT DATE: 201907
